FAERS Safety Report 25228494 (Version 2)
Quarter: 2025Q2

REPORT INFORMATION
  Report Type: Report from Study
  Country: US (occurrence: US)
  Receive Date: 20250423
  Receipt Date: 20250619
  Transmission Date: 20250716
  Serious: No
  Sender: ACADIA PHARMACEUTICALS
  Company Number: US-ACADIA PHARMACEUTICALS INC.-ACA-2025-PIM-004485

PATIENT
  Age: 55 Year
  Sex: Female

DRUGS (18)
  1. NUPLAZID [Suspect]
     Active Substance: PIMAVANSERIN TARTRATE
     Indication: Major depression
     Dosage: 34 MILLIGRAM, QD
     Route: 048
     Dates: start: 20211002
  2. NUPLAZID [Suspect]
     Active Substance: PIMAVANSERIN TARTRATE
     Indication: Anxiety
  3. NUPLAZID [Suspect]
     Active Substance: PIMAVANSERIN TARTRATE
     Indication: Hallucination
  4. SUMATRIPTAN [Concomitant]
     Active Substance: SUMATRIPTAN
  5. BENZTROPINE [Concomitant]
     Active Substance: BENZTROPINE
  6. LEVOTHYROXINE [Concomitant]
     Active Substance: LEVOTHYROXINE
  7. MODAFINIL [Concomitant]
     Active Substance: MODAFINIL
  8. OMEPRAZOLE [Concomitant]
     Active Substance: OMEPRAZOLE
  9. OXCARBAZEPINE [Concomitant]
     Active Substance: OXCARBAZEPINE
  10. PRAZOSIN [Concomitant]
     Active Substance: PRAZOSIN
  11. PROPRANOLOL [Concomitant]
     Active Substance: PROPRANOLOL HYDROCHLORIDE
  12. SONATA [Concomitant]
     Active Substance: ZALEPLON
  13. VENLAFAXINE [Concomitant]
     Active Substance: VENLAFAXINE HYDROCHLORIDE
  14. VITAMIN D2 [Concomitant]
     Active Substance: ERGOCALCIFEROL
  15. ZONISAMIDE [Concomitant]
     Active Substance: ZONISAMIDE
  16. ALBUTEROL [Concomitant]
     Active Substance: ALBUTEROL
  17. VITAMIN B12 [Concomitant]
     Active Substance: CYANOCOBALAMIN
  18. VITAMIN B COMPLEX/B12 [VITAMIN B COMPLEX] [Concomitant]

REACTIONS (4)
  - Memory impairment [Recovered/Resolved]
  - Somnolence [Recovered/Resolved]
  - Product dose omission issue [Recovered/Resolved]
  - Product dose omission issue [Recovered/Resolved]

NARRATIVE: CASE EVENT DATE: 20250301
